FAERS Safety Report 10488488 (Version 2)
Quarter: 2014Q4

REPORT INFORMATION
  Report Type: Spontaneous
  Country: US (occurrence: None)
  Receive Date: 20140912
  Receipt Date: 20141218
  Transmission Date: 20150528
  Serious: Yes (Hospitalization)
  Sender: FDA-Public Use
  Company Number: GTI002475

PATIENT
  Age: 59 Year
  Sex: Male
  Weight: 74.84 kg

DRUGS (8)
  1. ALBUTEROL. [Concomitant]
     Active Substance: ALBUTEROL
  2. PREDNISONE. [Concomitant]
     Active Substance: PREDNISONE
  3. MORPHINE [Concomitant]
     Active Substance: MORPHINE
  4. SYMBICORT [Concomitant]
     Active Substance: BUDESONIDE\FORMOTEROL FUMARATE DIHYDRATE
  5. COMBIVENT [Concomitant]
     Active Substance: ALBUTEROL SULFATE\IPRATROPIUM BROMIDE
  6. DOCUSATE [Concomitant]
     Active Substance: DOCUSATE
  7. ROFLUMILAST [Concomitant]
     Active Substance: ROFLUMILAST
  8. PROLASTIN-C [Suspect]
     Active Substance: .ALPHA.1-PROTEINASE INHIBITOR HUMAN
     Indication: ALPHA-1 ANTI-TRYPSIN DEFICIENCY
     Route: 042
     Dates: start: 20140805, end: 20140812

REACTIONS (8)
  - Incorrect drug administration rate [None]
  - Paraesthesia oral [None]
  - Anxiety [None]
  - Dizziness [None]
  - Chest pain [None]
  - Influenza like illness [None]
  - Infusion related reaction [None]
  - Presyncope [None]

NARRATIVE: CASE EVENT DATE: 20140805
